FAERS Safety Report 8137672-4 (Version None)
Quarter: 2012Q1

REPORT INFORMATION
  Report Type: 
  Country: None (occurrence: None)
  Receive Date: 20120103
  Receipt Date: 20110919
  Transmission Date: 20120608
  Serious: No
  Sender: FDA-Public Use
  Company Number: AE-2011-001381

PATIENT
  Age: 63 Year
  Sex: Female
  Weight: 71.2147 kg

DRUGS (5)
  1. PEGASYS [Concomitant]
  2. XANAX [Concomitant]
  3. RIBAVIRIN [Concomitant]
  4. INCIVEK [Suspect]
     Dosage: 2250 MG (750 MG, 1 IN 8 HR), ORAL
     Route: 048
     Dates: start: 20110808, end: 20110903
  5. HYDROCODONE BITARTRATE [Concomitant]

REACTIONS (1)
  - INCORRECT DOSE ADMINISTERED [None]
